FAERS Safety Report 8457757 (Version 5)
Quarter: 2012Q4

REPORT INFORMATION
  Report Type: Spontaneous
  Country: US (occurrence: None)
  Receive Date: 20120306
  Receipt Date: 20120907
  Transmission Date: 20130627
  Serious: Yes (Hospitalization, Other)
  Sender: FDA-Public Use
  Company Number: CIP11002265

PATIENT
  Age: 60 Year
  Sex: Female

DRUGS (49)
  1. ACTONEL [Suspect]
     Indication: OSTEOPOROSIS
     Route: 048
     Dates: start: 20030516, end: 200908
  2. FOSAMAX [Suspect]
     Indication: OSTEOPOROSIS
     Route: 048
     Dates: end: 2009
  3. FOSAMAX [Suspect]
     Indication: OSTEOPOROSIS PROPHYLAXIS
     Route: 048
     Dates: end: 2009
  4. FOSAMAX [Suspect]
     Indication: OSTEOPENIA
     Route: 048
     Dates: end: 2009
  5. FOSAMAX [Suspect]
     Indication: PROPHYLAXIS
     Route: 048
     Dates: end: 2009
  6. FOSAMAX [Suspect]
     Indication: OSTEOPOROSIS
     Route: 048
     Dates: start: 1995
  7. FOSAMAX [Suspect]
     Indication: OSTEOPOROSIS PROPHYLAXIS
     Route: 048
     Dates: start: 1995
  8. FOSAMAX [Suspect]
     Indication: OSTEOPENIA
     Route: 048
     Dates: start: 1995
  9. FOSAMAX [Suspect]
     Indication: PROPHYLAXIS
     Route: 048
     Dates: start: 1995
  10. FOSAMAX [Suspect]
     Indication: OSTEOPOROSIS
     Route: 048
     Dates: start: 200004, end: 20010427
  11. FOSAMAX [Suspect]
     Indication: OSTEOPOROSIS PROPHYLAXIS
     Route: 048
     Dates: start: 200004, end: 20010427
  12. FOSAMAX [Suspect]
     Indication: OSTEOPENIA
     Route: 048
     Dates: start: 200004, end: 20010427
  13. FOSAMAX [Suspect]
     Indication: PROPHYLAXIS
     Route: 048
     Dates: start: 200004, end: 20010427
  14. FOSAMAX [Suspect]
     Indication: OSTEOPOROSIS
     Route: 048
     Dates: start: 20010427, end: 20030516
  15. FOSAMAX [Suspect]
     Indication: OSTEOPOROSIS PROPHYLAXIS
     Route: 048
     Dates: start: 20010427, end: 20030516
  16. FOSAMAX [Suspect]
     Indication: OSTEOPENIA
     Route: 048
     Dates: start: 20010427, end: 20030516
  17. FOSAMAX [Suspect]
     Indication: PROPHYLAXIS
     Route: 048
     Dates: start: 20010427, end: 20030516
  18. FOSAMAX [Suspect]
     Indication: OSTEOPOROSIS
     Route: 048
     Dates: start: 20020401, end: 20021112
  19. FOSAMAX [Suspect]
     Indication: OSTEOPOROSIS PROPHYLAXIS
     Route: 048
     Dates: start: 20020401, end: 20021112
  20. FOSAMAX [Suspect]
     Indication: OSTEOPENIA
     Route: 048
     Dates: start: 20020401, end: 20021112
  21. FOSAMAX [Suspect]
     Indication: PROPHYLAXIS
     Route: 048
     Dates: start: 20020401, end: 20021112
  22. RECLAST [Suspect]
     Route: 042
     Dates: start: 20090828, end: 20090828
  23. HYDROCODONE BITARTRATE [Concomitant]
  24. CYCLOBENZAPRINE [Concomitant]
  25. CELEBREX [Concomitant]
  26. AMBIEN [Concomitant]
  27. VITAMIN A /00056001/ (RETINOL) [Concomitant]
  28. VITAMIN C/00008001/ (ASCORBIC ACID) [Concomitant]
  29. VITAMIN B COMPLEX (VITAMIN B COMPLEX) [Concomitant]
  30. VITAMIN D [Concomitant]
  31. VITAMIN E /00110501/ (TOCOPHEROL) [Concomitant]
  32. CALCIUM CARBONATE [Concomitant]
  33. MAGNESIUM (MAGNESIUM) [Concomitant]
  34. BLACK COHOSH /01456805/ (CIMICIFUGA RACEMOSA ROOT) [Concomitant]
  35. GINKO BILOBA (GINKGO BILOBA) [Concomitant]
  36. PROTONIX [Concomitant]
  37. VICODIN [Concomitant]
  38. GARLIC /01570501/ (ALLIUM SATIVUM) [Concomitant]
  39. GLUCOSAMINE CHONDROITIN /01625901/ (CHONDROITIN SULFATE, GLUCOSAMINE) [Concomitant]
  40. GELATIN (GELATIN) [Concomitant]
  41. BETA CAROTENE (BETACAROTENE) [Concomitant]
  42. SELENIUM (SELENIUM) [Concomitant]
  43. ZINC (ZINC) [Concomitant]
  44. GAS-X /06269601/ (SIMETICONE) [Concomitant]
  45. FIBERCON (POLYCARBOPHIL CALCIUM) [Concomitant]
  46. METROGEL-VAGINAL /00012501/ (METRONIDAZOLE) [Concomitant]
  47. ZOVIRAX /00587301/ (ACICLOVIR) [Concomitant]
  48. RANITIDINE HYDROCHLORIDE [Concomitant]
  49. SMZ-TMP (SULFAMETHOXAZOLE, TRIMETHOPRIM) [Concomitant]

REACTIONS (24)
  - Femur fracture [None]
  - Fracture displacement [None]
  - Pain in extremity [None]
  - Weight bearing difficulty [None]
  - Fall [None]
  - Oedema peripheral [None]
  - Arthralgia [None]
  - Stress fracture [None]
  - Low turnover osteopathy [None]
  - Bone disorder [None]
  - Osteomalacia [None]
  - Condition aggravated [None]
  - Fracture malunion [None]
  - Culture positive [None]
  - Osteomyelitis [None]
  - Multiple fractures [None]
  - Multiple injuries [None]
  - Pathological fracture [None]
  - Bone pain [None]
  - Myalgia [None]
  - Pain in extremity [None]
  - Metastases to bone [None]
  - Arthralgia [None]
  - Impaired healing [None]
